FAERS Safety Report 10190017 (Version 1)
Quarter: 2014Q2

REPORT INFORMATION
  Report Type: Spontaneous
  Country: GB (occurrence: GB)
  Receive Date: 20140522
  Receipt Date: 20140522
  Transmission Date: 20141212
  Serious: Yes (Other)
  Sender: FDA-Public Use
  Company Number: GB-AMGEN-GBRSP2014036313

PATIENT
  Sex: Female

DRUGS (6)
  1. PROLIA [Suspect]
     Indication: OSTEOPOROSIS
     Dosage: 60 MG, UNK
     Route: 058
     Dates: start: 201310, end: 201402
  2. DOMPERIDONE [Concomitant]
     Dosage: 20 MG, TID
     Route: 048
  3. MOVICOL                            /01625101/ [Concomitant]
     Route: 048
  4. OMEPRAZOLE [Concomitant]
     Dosage: 40 MG, UNK
     Route: 048
  5. RANITIDINE [Concomitant]
     Dosage: 300 MG, UNK
     Route: 048
  6. VITAMIN D                          /00107901/ [Concomitant]
     Dosage: 25 MUG, UNK
     Route: 048

REACTIONS (6)
  - Condition aggravated [Unknown]
  - Ear pain [Recovered/Resolved]
  - Otitis externa [Recovered/Resolved]
  - Headache [Recovered/Resolved]
  - Otitis media [Recovered/Resolved]
  - Tenderness [Recovered/Resolved]
